FAERS Safety Report 21471117 (Version 5)
Quarter: 2023Q1

REPORT INFORMATION
  Report Type: Report from Study
  Country: US (occurrence: US)
  Receive Date: 20221018
  Receipt Date: 20230326
  Transmission Date: 20230418
  Serious: Yes (Other)
  Sender: FDA-Public Use
  Company Number: US-ABBVIE-4154520

PATIENT
  Sex: Female

DRUGS (3)
  1. IMBRUVICA [Suspect]
     Active Substance: IBRUTINIB
     Indication: Chronic lymphocytic leukaemia
     Dosage: STRENGTH: 140 MG
     Route: 048
     Dates: start: 20220929
  2. IMBRUVICA [Suspect]
     Active Substance: IBRUTINIB
     Indication: Chronic lymphocytic leukaemia
     Dosage: END DATE -2022,STRENGTH: 140 MG
     Route: 048
     Dates: start: 202207
  3. MIRALAX [Concomitant]
     Active Substance: POLYETHYLENE GLYCOL 3350
     Indication: Product used for unknown indication

REACTIONS (14)
  - Vaginal prolapse [Unknown]
  - Depressed mood [Unknown]
  - Dizziness [Unknown]
  - Dysstasia [Unknown]
  - Fatigue [Unknown]
  - Constipation [Unknown]
  - Blood urine present [Unknown]
  - Memory impairment [Unknown]
  - Arthralgia [Unknown]
  - Headache [Unknown]
  - Tinnitus [Unknown]
  - Diarrhoea [Unknown]
  - Lymphadenopathy [Unknown]
  - Muscle spasms [Recovered/Resolved]
